FAERS Safety Report 18208839 (Version 2)
Quarter: 2020Q3

REPORT INFORMATION
  Report Type: Report from Study
  Country: US (occurrence: US)
  Receive Date: 20200828
  Receipt Date: 20200903
  Transmission Date: 20201103
  Serious: Yes (Hospitalization, Other)
  Sender: FDA-Public Use
  Company Number: US-ASTRAZENECA-2020SF07429

PATIENT
  Sex: Male

DRUGS (1)
  1. TAGRISSO [Suspect]
     Active Substance: OSIMERTINIB
     Indication: LUNG CARCINOMA CELL TYPE UNSPECIFIED STAGE 0
     Route: 048

REACTIONS (7)
  - Rash [Unknown]
  - Erythema [Unknown]
  - Insomnia [Unknown]
  - Lung disorder [Unknown]
  - Diarrhoea [Unknown]
  - Fatigue [Unknown]
  - Pleural effusion [Unknown]
